FAERS Safety Report 8612416-8 (Version None)
Quarter: 2012Q3

REPORT INFORMATION
  Report Type: 
  Country: None (occurrence: None)
  Receive Date: 20120822
  Receipt Date: 20120809
  Transmission Date: 20120928
  Serious: No
  Sender: FDA-Public Use
  Company Number: US-B.I. PHARMACEUTICALS,INC./RIDGEFIELD-2012-BP-18838BP

PATIENT
  Age: 65 Year
  Sex: Female

DRUGS (10)
  1. ANTIVERT [Concomitant]
     Indication: DIZZINESS
  2. TAPAZOLE [Concomitant]
     Indication: HYPERTHYROIDISM
  3. OXYGEN [Concomitant]
     Indication: CHRONIC OBSTRUCTIVE PULMONARY DISEASE
  4. LISINOPRIL [Concomitant]
     Indication: HYPERTENSION
  5. PRADAXA [Suspect]
     Indication: ATRIAL FIBRILLATION
     Dosage: 300 MG
     Route: 048
     Dates: start: 20110101
  6. COMBIVENT [Concomitant]
     Indication: CHRONIC OBSTRUCTIVE PULMONARY DISEASE
  7. NORVASC [Concomitant]
     Indication: HYPERTENSION
  8. CRESTOR [Concomitant]
     Indication: BLOOD CHOLESTEROL INCREASED
  9. COREG [Concomitant]
     Indication: HYPERTENSION
  10. LANTUS [Concomitant]
     Indication: DIABETES MELLITUS

REACTIONS (8)
  - INSOMNIA [None]
  - ASTHENIA [None]
  - BACK PAIN [None]
  - ARTHRALGIA [None]
  - ARTHRITIS [None]
  - MUSCULOSKELETAL PAIN [None]
  - NAUSEA [None]
  - PAIN IN EXTREMITY [None]
